FAERS Safety Report 22208897 (Version 2)
Quarter: 2023Q2

REPORT INFORMATION
  Report Type: Spontaneous
  Country: US (occurrence: US)
  Receive Date: 20230413
  Receipt Date: 20230504
  Transmission Date: 20230721
  Serious: No
  Sender: FDA-Public Use
  Company Number: US-SA-SAC20230411000315

PATIENT
  Age: 51 Year
  Sex: Female
  Weight: 72.5 kg

DRUGS (1)
  1. DUPIXENT [Suspect]
     Active Substance: DUPILUMAB
     Indication: Dermatitis atopic
     Dosage: 300 MG, QOW
     Route: 058
     Dates: start: 202301

REACTIONS (9)
  - Periorbital swelling [Unknown]
  - Lacrimation increased [Unknown]
  - Peripheral swelling [Unknown]
  - Joint swelling [Unknown]
  - Ocular hyperaemia [Unknown]
  - Vision blurred [Unknown]
  - Eczema [Unknown]
  - Therapeutic response decreased [Unknown]
  - Eye pruritus [Unknown]

NARRATIVE: CASE EVENT DATE: 20230404
